FAERS Safety Report 22869172 (Version 4)
Quarter: 2024Q1

REPORT INFORMATION
  Report Type: Report from Study
  Country: US (occurrence: US)
  Receive Date: 20230826
  Receipt Date: 20240108
  Transmission Date: 20240409
  Serious: No
  Sender: FDA-Public Use
  Company Number: US-002147023-NVSC2023US185547

PATIENT
  Age: 75 Year
  Sex: Female

DRUGS (1)
  1. PIQRAY [Suspect]
     Active Substance: ALPELISIB
     Indication: Hormone receptor positive HER2 negative breast cancer
     Dosage: UNK, QD
     Route: 048
     Dates: start: 20230818

REACTIONS (3)
  - Pollakiuria [Unknown]
  - Hyperglycaemia [Unknown]
  - Illness [Unknown]

NARRATIVE: CASE EVENT DATE: 20230824
